FAERS Safety Report 22387380 (Version 1)
Quarter: 2023Q2

REPORT INFORMATION
  Report Type: Spontaneous
  Country: CN (occurrence: CN)
  Receive Date: 20230531
  Receipt Date: 20230531
  Transmission Date: 20230722
  Serious: Yes (Hospitalization, Other)
  Sender: FDA-Public Use
  Company Number: None

PATIENT
  Age: 57 Year
  Sex: Female
  Weight: 38 kg

DRUGS (6)
  1. CYCLOPHOSPHAMIDE [Suspect]
     Active Substance: CYCLOPHOSPHAMIDE
     Indication: Breast cancer female
     Dosage: 0.63 G, QD (DILUTED WITH NS 100 ML)
     Route: 041
     Dates: start: 20230504, end: 20230504
  2. SODIUM CHLORIDE [Suspect]
     Active Substance: SODIUM CHLORIDE
     Indication: Medication dilution
     Dosage: 100 ML, QD (USED TO DILUTE 0.63 G OF CYCLOPHOSPHAMIDE)
     Route: 041
     Dates: start: 20230504, end: 20230504
  3. SODIUM CHLORIDE [Suspect]
     Active Substance: SODIUM CHLORIDE
     Dosage: 100 ML, QD (USED TO DILUTE 63 MG DOXORUBICIN HYDROCHLORIDE)
     Route: 041
     Dates: start: 20230504, end: 20230504
  4. SODIUM CHLORIDE [Suspect]
     Active Substance: SODIUM CHLORIDE
     Dosage: 66 ML, QD (USED TO DILUTE PACLITAXEL ALBUMIN-BOUND 329 MG)
     Route: 041
     Dates: start: 20230504, end: 20230504
  5. PACLITAXEL [Suspect]
     Active Substance: PACLITAXEL
     Indication: Breast cancer female
     Dosage: 329 MG, QD (DILUTED WITH NS 66 ML) (KEAILI)
     Route: 041
     Dates: start: 20230504, end: 20230504
  6. DOXORUBICIN HYDROCHLORIDE [Suspect]
     Active Substance: DOXORUBICIN HYDROCHLORIDE
     Indication: Breast cancer female
     Dosage: 63 MG, QD (DILUTED WITH NS 100 ML)
     Route: 041
     Dates: start: 20230504, end: 20230504

REACTIONS (1)
  - Myelosuppression [Recovering/Resolving]

NARRATIVE: CASE EVENT DATE: 20230513
